FAERS Safety Report 9046472 (Version 1)
Quarter: 2013Q1

REPORT INFORMATION
  Report Type: Spontaneous
  Country: US (occurrence: None)
  Receive Date: 20130128
  Receipt Date: 20130128
  Transmission Date: 20140127
  Serious: Yes (Other)
  Sender: FDA-Public Use
  Company Number: None

PATIENT
  Age: 77 Year
  Sex: Female
  Weight: 86.18 kg

DRUGS (1)
  1. ZICAM COLD REMEDY NASAL SWABS [Suspect]
     Indication: NASOPHARYNGITIS
     Route: 045
     Dates: start: 20121227, end: 20121229

REACTIONS (2)
  - Ageusia [None]
  - Anosmia [None]
